FAERS Safety Report 11167976 (Version 1)
Quarter: 2015Q2

REPORT INFORMATION
  Report Type: Spontaneous
  Country: RU (occurrence: RU)
  Receive Date: 20150605
  Receipt Date: 20150605
  Transmission Date: 20150821
  Serious: Yes (Other)
  Sender: FDA-Public Use
  Company Number: RU-MERCK-1506RUS000287

PATIENT
  Age: 60 Year
  Sex: Female

DRUGS (3)
  1. ALLAPININ [Concomitant]
  2. AVELOX [Interacting]
     Active Substance: MOXIFLOXACIN HYDROCHLORIDE
     Indication: BRONCHITIS CHRONIC
     Dosage: 1 DF, UNK
     Dates: start: 20150525
  3. AERIUS [Suspect]
     Active Substance: DESLORATADINE
     Indication: RHINOVIRUS INFECTION
     Dosage: 1 DF, UNK
     Dates: start: 20150525

REACTIONS (5)
  - Blood pressure increased [Recovered/Resolved]
  - Feeling abnormal [Unknown]
  - Hyperhidrosis [Unknown]
  - Dizziness [Unknown]
  - Drug interaction [Unknown]

NARRATIVE: CASE EVENT DATE: 20150525
